FAERS Safety Report 14683781 (Version 1)
Quarter: 2018Q1

REPORT INFORMATION
  Report Type: Spontaneous
  Country: PL (occurrence: PL)
  Receive Date: 20180327
  Receipt Date: 20180327
  Transmission Date: 20180509
  Serious: Yes (Other)
  Sender: FDA-Public Use
  Company Number: PL-BAYER-2017-247127

PATIENT
  Age: 69 Year
  Sex: Female
  Weight: 84 kg

DRUGS (15)
  1. INDAPAMID [Suspect]
     Active Substance: INDAPAMIDE
  2. CANDESARTAN. [Concomitant]
     Active Substance: CANDESARTAN
  3. SIMVASTATINE [Suspect]
     Active Substance: SIMVASTATIN
  4. CILAZAPRIL [Suspect]
     Active Substance: CILAZAPRIL ANHYDROUS
  5. VALSARTAN. [Suspect]
     Active Substance: VALSARTAN
  6. ACETYLSALICYLIC ACID (} 100 MG) [Suspect]
     Active Substance: ASPIRIN
  7. CLOPIDOGREL [Suspect]
     Active Substance: CLOPIDOGREL BISULFATE
  8. PERINDOPRIL [Suspect]
     Active Substance: PERINDOPRIL
  9. AMLODIPINE [Suspect]
     Active Substance: AMLODIPINE BESYLATE
  10. METOPROLOL. [Suspect]
     Active Substance: METOPROLOL
  11. LERCANIDIPINE [Suspect]
     Active Substance: LERCANIDIPINE
  12. LEVOTHYROXINE. [Concomitant]
     Active Substance: LEVOTHYROXINE
     Indication: HYPOTHYROIDISM
  13. CANDESARTAN. [Concomitant]
     Active Substance: CANDESARTAN
  14. TELMISARTAN [BAYER] [Suspect]
     Active Substance: TELMISARTAN
  15. RAMIPRIL. [Suspect]
     Active Substance: RAMIPRIL

REACTIONS (13)
  - Cough [None]
  - Myalgia [None]
  - Thrombocytopenia [Unknown]
  - Peripheral swelling [None]
  - Tinnitus [None]
  - Malaise [Unknown]
  - Labelled drug-drug interaction medication error [None]
  - Feeling abnormal [None]
  - Drug administration error [None]
  - Drug intolerance [None]
  - Chest pain [None]
  - Labile hypertension [None]
  - Muscle spasms [None]
